FAERS Safety Report 5516470-1 (Version None)
Quarter: 2007Q4

REPORT INFORMATION
  Report Type: 
  Country: None (occurrence: None)
  Receive Date: 20071114
  Receipt Date: 20070301
  Transmission Date: 20080405
  Serious: No
  Sender: FDA-Public Use
  Company Number: A0641315A

PATIENT
  Age: 61 Year
  Sex: Male

DRUGS (2)
  1. COMMIT [Suspect]
     Dates: start: 20070226, end: 20070226
  2. NICODERM CQ [Suspect]

REACTIONS (4)
  - APPLICATION SITE REACTION [None]
  - DIARRHOEA [None]
  - MALAISE [None]
  - VOMITING [None]
